FAERS Safety Report 10032682 (Version 2)
Quarter: 2014Q1

REPORT INFORMATION
  Report Type: Report from Study
  Country: DE (occurrence: DE)
  Receive Date: 20140324
  Receipt Date: 20140326
  Transmission Date: 20141002
  Serious: Yes (Hospitalization)
  Sender: FDA-Public Use
  Company Number: DE-GLAXOSMITHKLINE-B0972418B

PATIENT
  Age: 62 Year
  Sex: Female
  Weight: 80 kg

DRUGS (2)
  1. PAZOPANIB [Suspect]
     Indication: SARCOMA
     Dates: start: 20140206
  2. GEMCITABINE [Suspect]
     Indication: SARCOMA
     Dates: start: 20140206

REACTIONS (2)
  - Febrile neutropenia [Not Recovered/Not Resolved]
  - General physical health deterioration [Unknown]
